FAERS Safety Report 9169651 (Version 1)
Quarter: 2013Q1

REPORT INFORMATION
  Report Type: Spontaneous
  Country: BR (occurrence: BR)
  Receive Date: 20130318
  Receipt Date: 20130318
  Transmission Date: 20140127
  Serious: Yes (Hospitalization)
  Sender: FDA-Public Use
  Company Number: BR-PFIZER INC-2013087089

PATIENT
  Age: 67 Year
  Sex: Female

DRUGS (1)
  1. CITALOR [Suspect]
     Dosage: 40 MG, DAILY
     Route: 048
     Dates: start: 201211, end: 20130206

REACTIONS (2)
  - Chest pain [Unknown]
  - Cardiac disorder [Unknown]
